FAERS Safety Report 5420365-1 (Version None)
Quarter: 2007Q3

REPORT INFORMATION
  Report Type: 
  Country: None (occurrence: None)
  Receive Date: 20070816
  Receipt Date: 20070720
  Transmission Date: 20080115
  Serious: Yes (Other)
  Sender: FDA-Public Use
  Company Number: 684/6036240

PATIENT
  Age: 50 Year
  Sex: Male

DRUGS (4)
  1. FLUCONAZOLE [Suspect]
     Dosage: 200 MG
  2. MYCOPHENOLATE MOFETIL [Concomitant]
  3. MOFETIL (MYCOPHENOLATE MOFETIL) [Concomitant]
  4. SOLU-MEDROL [Concomitant]

REACTIONS (2)
  - GENERAL PHYSICAL HEALTH DETERIORATION [None]
  - TORSADE DE POINTES [None]
